FAERS Safety Report 14926950 (Version 2)
Quarter: 2018Q2

REPORT INFORMATION
  Report Type: Spontaneous
  Country: JP (occurrence: JP)
  Receive Date: 20180523
  Receipt Date: 20180525
  Transmission Date: 20180711
  Serious: Yes (Other)
  Sender: FDA-Public Use
  Company Number: JP-ROCHE-2127522

PATIENT
  Age: 8 Decade
  Sex: Male

DRUGS (3)
  1. TAMIFLU [Suspect]
     Active Substance: OSELTAMIVIR PHOSPHATE
     Indication: PRODUCT USED FOR UNKNOWN INDICATION
     Dosage: DOSAGE IS UNCERTAIN.
     Route: 048
  2. INAVIR (JAPAN) [Concomitant]
  3. RAPIACTA [Concomitant]
     Active Substance: PERAMIVIR
     Route: 065

REACTIONS (1)
  - Pathogen resistance [Unknown]

NARRATIVE: CASE EVENT DATE: 201603
